FAERS Safety Report 7630788-8 (Version None)
Quarter: 2011Q3

REPORT INFORMATION
  Report Type: 
  Country: None (occurrence: None)
  Receive Date: 20110722
  Receipt Date: 20110713
  Transmission Date: 20111222
  Serious: Yes (Hospitalization, Disabling, Other)
  Sender: FDA-Public Use
  Company Number: US-ASTRAZENECA-2011SE24659

PATIENT
  Age: 60 Year
  Sex: Female

DRUGS (24)
  1. FIORICET [Concomitant]
     Indication: TENSION HEADACHE
  2. RESVERATROL [Concomitant]
  3. LORATADINE [Concomitant]
  4. FISH OIL [Concomitant]
     Indication: MEDICAL DIET
  5. PERCOCET [Concomitant]
     Indication: BACK PAIN
     Dosage: 10 MG/325 MG
  6. NEILMED SINUS RINSE [Concomitant]
     Indication: CHRONIC SINUSITIS
  7. CO Q-10 [Concomitant]
     Indication: CARDIAC DISORDER
  8. DIAZEPAM [Concomitant]
     Indication: STRESS
  9. NEXIUM [Suspect]
     Indication: GASTRITIS
     Route: 048
  10. FIORICET [Concomitant]
     Indication: SINUS DISORDER
  11. ALENDRONATE SODIUM [Concomitant]
     Indication: BONE DISORDER
     Dosage: FOR 1 WEEK
  12. ZOLPIDEM [Concomitant]
     Indication: SLEEP DISORDER
  13. NAPROXEN (ALEVE) [Concomitant]
     Dosage: 220MG 2-4/DAY
  14. PERCOCET [Concomitant]
     Indication: NECK PAIN
     Dosage: 10 MG/325 MG
  15. AMLODIPINE [Concomitant]
     Indication: HYPERTENSION
     Dosage: 10-40MG/DAY
  16. ASPIRIN [Concomitant]
     Indication: CARDIAC DISORDER
  17. ZICAM [Concomitant]
     Indication: HYPERSENSITIVITY
  18. SIMVASTATIN [Concomitant]
     Indication: BLOOD CHOLESTEROL
  19. NEXIUM [Suspect]
     Indication: GASTRIC ULCER
     Route: 048
  20. MUCINEX [Concomitant]
  21. OSTEO BI-FLEX [Concomitant]
     Indication: ARTHRALGIA
     Dosage: 2/DAY
  22. EFFEXOR XR [Concomitant]
     Indication: DEPRESSION
  23. CORAL CALCIUM [Concomitant]
     Dosage: 3/DAY
  24. COLON CLEAR FORMULA [Concomitant]
     Indication: MEDICAL DIET

REACTIONS (17)
  - SINUS OPERATION [None]
  - LIGAMENT OPERATION [None]
  - HAND FRACTURE [None]
  - SINUSITIS [None]
  - SPINAL OPERATION [None]
  - JOINT DISLOCATION [None]
  - MALAISE [None]
  - ACCIDENT [None]
  - DISABILITY [None]
  - ARTHROPATHY [None]
  - SHOULDER ARTHROPLASTY [None]
  - HERPES ZOSTER [None]
  - MULTIPLE ALLERGIES [None]
  - SCOLIOSIS [None]
  - MENISCUS LESION [None]
  - ULCER [None]
  - ROTATOR CUFF SYNDROME [None]
